FAERS Safety Report 5972611-3 (Version None)
Quarter: 2008Q4

REPORT INFORMATION
  Report Type: 
  Country: None (occurrence: None)
  Receive Date: 20081126
  Receipt Date: 20081126
  Transmission Date: 20090506
  Serious: No
  Sender: FDA-Public Use
  Company Number: None

PATIENT
  Age: 61 Year
  Sex: Female
  Weight: 56.6996 kg

DRUGS (1)
  1. PROVENTIL-HFA [Suspect]
     Dosage: 2 PUFFS 4XDAY

REACTIONS (4)
  - DEVICE INEFFECTIVE [None]
  - DEVICE OCCLUSION [None]
  - DRUG INEFFECTIVE [None]
  - MEDICAL DEVICE COMPLICATION [None]
